FAERS Safety Report 20546845 (Version 2)
Quarter: 2022Q1

REPORT INFORMATION
  Report Type: Spontaneous
  Country: GB (occurrence: GB)
  Receive Date: 20220303
  Receipt Date: 20220304
  Transmission Date: 20220423
  Serious: Yes (Hospitalization)
  Sender: FDA-Public Use
  Company Number: GB-MHRA-MED-202202171456467950-WB9DQ

PATIENT
  Age: 8 Year
  Sex: Male

DRUGS (1)
  1. METHOTREXATE SODIUM [Suspect]
     Active Substance: METHOTREXATE SODIUM
     Dosage: 10 MG, 1X/DAY
     Dates: start: 20200115

REACTIONS (5)
  - Pyrexia [Recovered/Resolved]
  - Nervousness [Unknown]
  - Feeling hot [Unknown]
  - Livedo reticularis [Unknown]
  - Vomiting [Unknown]

NARRATIVE: CASE EVENT DATE: 20220131
